FAERS Safety Report 9406598 (Version 1)
Quarter: 2013Q3

REPORT INFORMATION
  Report Type: Report from Study
  Country: CA (occurrence: CA)
  Receive Date: 20130718
  Receipt Date: 20130718
  Transmission Date: 20140515
  Serious: Yes (Death, Congenital Anomaly)
  Sender: FDA-Public Use
  Company Number: CA-JNJFOC-20130703975

PATIENT
  Sex: Female

DRUGS (1)
  1. REMICADE [Suspect]
     Indication: CROHN^S DISEASE
     Dosage: FATHER^S DOSING
     Route: 064
     Dates: start: 201202

REACTIONS (4)
  - Death [Fatal]
  - Heart disease congenital [Unknown]
  - Neck mass [Unknown]
  - Foetal exposure during pregnancy [Recovered/Resolved]
